FAERS Safety Report 22159351 (Version 1)
Quarter: 2023Q1

REPORT INFORMATION
  Report Type: Spontaneous
  Country: AT (occurrence: AT)
  Receive Date: 20230331
  Receipt Date: 20230331
  Transmission Date: 20230418
  Serious: Yes (Other)
  Sender: FDA-Public Use
  Company Number: AT-ALKEM LABORATORIES LIMITED-AT-ALKEM-2023-03029

PATIENT
  Age: 44 Year
  Sex: Female

DRUGS (1)
  1. DABIGATRAN ETEXILATE MESYLATE [Suspect]
     Active Substance: DABIGATRAN ETEXILATE MESYLATE
     Indication: Deep vein thrombosis
     Dosage: 150 MILLIGRAMS, BID, LAST INTAKE ON THE DAY OF ADMISSION (8:00 IN THE MORNING)
     Route: 065

REACTIONS (3)
  - Subarachnoid haemorrhage [Unknown]
  - Thrombin time prolonged [Recovering/Resolving]
  - Activated partial thromboplastin time prolonged [Recovering/Resolving]
